FAERS Safety Report 4969481-9 (Version None)
Quarter: 2006Q2

REPORT INFORMATION
  Report Type: 
  Country: None (occurrence: None)
  Receive Date: 20060406
  Receipt Date: 20060327
  Transmission Date: 20061013
  Serious: Yes (Death, Hospitalization)
  Sender: FDA-Public Use
  Company Number: 163-20785-05020296

PATIENT
  Age: 77 Year
  Sex: Male

DRUGS (2)
  1. THALOMID [Suspect]
     Indication: MULTIPLE MYELOMA
     Dosage: 50 MG, BID, ORAL
     Route: 048
     Dates: start: 20030801, end: 20050101
  2. DECADRON [Suspect]
     Indication: MULTIPLE MYELOMA
     Dates: start: 20030801, end: 20050101

REACTIONS (3)
  - CARDIAC FAILURE [None]
  - DIVERTICULAR PERFORATION [None]
  - DIVERTICULITIS [None]
